FAERS Safety Report 13017666 (Version 2)
Quarter: 2017Q1

REPORT INFORMATION
  Report Type: Spontaneous
  Country: JP (occurrence: JP)
  Receive Date: 20161212
  Receipt Date: 20170321
  Transmission Date: 20170428
  Serious: Yes (Other)
  Sender: FDA-Public Use
  Company Number: JP-GILEAD-2016-0246563

PATIENT
  Age: 67 Year
  Sex: Male

DRUGS (10)
  1. HARVONI [Suspect]
     Active Substance: LEDIPASVIR\SOFOSBUVIR
     Indication: CHRONIC HEPATITIS C
     Route: 065
  2. OLMESARTAN [Concomitant]
     Active Substance: OLMESARTAN
  3. LOXOPROFEN [Concomitant]
     Active Substance: LOXOPROFEN
  4. WARFARIN [Concomitant]
     Active Substance: WARFARIN
  5. DILTIAZEM HYDROCHLORIDE R [Concomitant]
     Active Substance: DILTIAZEM HYDROCHLORIDE
  6. TRIAZOLAM. [Concomitant]
     Active Substance: TRIAZOLAM
  7. AMLODIPINE [Concomitant]
     Active Substance: AMLODIPINE BESYLATE
  8. FAMOTIDINE. [Concomitant]
     Active Substance: FAMOTIDINE
  9. SUVOREXANT. [Concomitant]
     Active Substance: SUVOREXANT
  10. ATENOLOL. [Concomitant]
     Active Substance: ATENOLOL

REACTIONS (1)
  - Mitral valve incompetence [Unknown]
